FAERS Safety Report 15653172 (Version 1)
Quarter: 2018Q4

REPORT INFORMATION
  Report Type: Spontaneous
  Country: US (occurrence: US)
  Receive Date: 20181123
  Receipt Date: 20181123
  Transmission Date: 20190205
  Serious: No
  Sender: FDA-Public Use
  Company Number: US-NOVOPROD-621150

PATIENT
  Sex: Male

DRUGS (2)
  1. FIASP 3ML PDS290 [Concomitant]
     Active Substance: INSULIN ASPART
     Indication: PRODUCT USED FOR UNKNOWN INDICATION
  2. NOVOLOG [Suspect]
     Active Substance: INSULIN ASPART
     Indication: PRODUCT USED FOR UNKNOWN INDICATION
     Dosage: 2 U PER 15 GRAMS OF CARBS
     Route: 058

REACTIONS (2)
  - Blood glucose increased [Unknown]
  - Infection [Unknown]
